FAERS Safety Report 8926019 (Version 1)
Quarter: 2012Q4

REPORT INFORMATION
  Report Type: 
  Country: US (occurrence: US)
  Receive Date: 20121126
  Receipt Date: 20121126
  Transmission Date: 20130627
  Serious: Yes (Hospitalization)
  Sender: FDA-Public Use
  Company Number: PHEH2012US022741

PATIENT
  Age: 36 Year
  Sex: Female

DRUGS (9)
  1. GILENYA [Suspect]
     Indication: MULTIPLE SCLEROSIS
     Dosage: 0.5 mg, QD
     Route: 048
     Dates: start: 201202
  2. KLONOPIN [Suspect]
     Dosage: 2 mg, UNK
  3. TRAMADOL [Concomitant]
     Dosage: 50 mg, UNK
  4. GABAPENTIN [Concomitant]
     Dosage: 600 mg, UNK
  5. BACLOFEN [Concomitant]
     Dosage: 10 mg, UNK
  6. FLEXERIL [Concomitant]
     Dosage: 5 mg, UNK
  7. TOPAMAX [Concomitant]
     Dosage: 25 mg, UNK
  8. PROZAC [Concomitant]
     Dosage: 20 mg, UNK
  9. NAPROXEN [Concomitant]
     Dosage: 220 mg, UNK

REACTIONS (6)
  - Road traffic accident [Unknown]
  - Overdose [Unknown]
  - Depression [Unknown]
  - Crying [Unknown]
  - Stress [Unknown]
  - Anxiety [Unknown]
